FAERS Safety Report 5475557-2 (Version None)
Quarter: 2007Q3

REPORT INFORMATION
  Report Type: 
  Country: None (occurrence: None)
  Receive Date: 20070906
  Receipt Date: 20070313
  Transmission Date: 20080115
  Serious: Yes (Other)
  Sender: FDA-Public Use
  Company Number: 1-14710230

PATIENT
  Age: 72 Year
  Sex: Male

DRUGS (11)
  1. LOPROX [Suspect]
     Indication: FUNGAL INFECTION
     Dosage: TWICE DAILY TOPICALLY
     Route: 061
     Dates: start: 20070224, end: 20070303
  2. ATENOLOL [Concomitant]
  3. DIOVAN HCT [Concomitant]
  4. ZOCOR [Concomitant]
  5. ASPIRIN [Concomitant]
  6. NIASPAN [Concomitant]
  7. NEURONTIN [Concomitant]
  8. SPIRIVA [Concomitant]
  9. CLOBESTASOL OINTMENT [Concomitant]
  10. DOVONEX (CALCIPOTRIENE) OINTMENT AND SOLUTION [Concomitant]
  11. DEPO-MEDROL [Concomitant]

REACTIONS (3)
  - DRUG HYPERSENSITIVITY [None]
  - PRURITUS GENERALISED [None]
  - RASH ERYTHEMATOUS [None]
